FAERS Safety Report 10005474 (Version 3)
Quarter: 2014Q2

REPORT INFORMATION
  Report Type: Spontaneous
  Country: JP (occurrence: JP)
  Receive Date: 20140312
  Receipt Date: 20140530
  Transmission Date: 20141212
  Serious: Yes (Death, Other)
  Sender: FDA-Public Use
  Company Number: JP-ELI_LILLY_AND_COMPANY-JP201403000625

PATIENT
  Age: 77 Year
  Sex: Female

DRUGS (11)
  1. FORTEO [Suspect]
     Indication: OSTEOPOROSIS
     Dosage: 20 UG, QD
     Route: 058
     Dates: start: 20111112
  2. PLAVIX [Concomitant]
     Dosage: 2 DF, QD
     Route: 048
  3. NIVADIL [Concomitant]
     Dosage: 2 DF, QD
     Route: 048
  4. DEPAS [Concomitant]
     Dosage: 2 DF, QD
     Route: 048
  5. MINZAIN [Concomitant]
     Dosage: 1 DF, QD
     Route: 048
  6. REMODELLIN [Concomitant]
     Dosage: 1 DF, QD
     Route: 048
  7. MENATETRENONE [Concomitant]
     Dosage: 3 DF, QD
     Route: 048
  8. IPRIFLAVONE [Concomitant]
     Dosage: 3 DF, QD
     Route: 048
  9. BIOFERMIN                          /00275501/ [Concomitant]
     Dosage: 3 G, QD
     Route: 048
  10. MAGNESIUM OXIDE [Concomitant]
     Dosage: 2 G, QD
     Route: 048
  11. YODEL [Concomitant]
     Dosage: 2 DF, QD
     Route: 048

REACTIONS (5)
  - Acute myeloid leukaemia [Fatal]
  - Hypothyroidism [Unknown]
  - Inflammation [Recovered/Resolved]
  - Bronchitis [Recovered/Resolved]
  - Hepatic enzyme increased [Unknown]
